FAERS Safety Report 5955510-2 (Version None)
Quarter: 2008Q4

REPORT INFORMATION
  Report Type: 
  Country: None (occurrence: None)
  Receive Date: 20081117
  Receipt Date: 20081113
  Transmission Date: 20090506
  Serious: Yes (Hospitalization, Disabling)
  Sender: FDA-Public Use
  Company Number: SE-WYE-G01814808

PATIENT
  Sex: Female
  Weight: 59.3 kg

DRUGS (2)
  1. RAPAMUNE [Suspect]
     Indication: GRAFT VERSUS HOST DISEASE
     Route: 048
     Dates: start: 20080520, end: 20080622
  2. PROGRAF [Interacting]
     Route: 048
     Dates: start: 20080520, end: 20080701

REACTIONS (3)
  - ALANINE AMINOTRANSFERASE INCREASED [None]
  - DRUG INTERACTION [None]
  - MICROANGIOPATHY [None]
